FAERS Safety Report 12322872 (Version 2)
Quarter: 2016Q2

REPORT INFORMATION
  Report Type: Spontaneous
  Country: US (occurrence: US)
  Receive Date: 20160502
  Receipt Date: 20160614
  Transmission Date: 20160815
  Serious: No
  Sender: FDA-Public Use
  Company Number: US-JNJFOC-20160321367

PATIENT
  Age: 59 Year
  Sex: Male
  Weight: 97.52 kg

DRUGS (2)
  1. STELARA [Suspect]
     Active Substance: USTEKINUMAB
     Indication: OSTEOARTHRITIS
     Route: 058
     Dates: start: 2015
  2. STELARA [Suspect]
     Active Substance: USTEKINUMAB
     Indication: PSORIATIC ARTHROPATHY
     Route: 058
     Dates: start: 2015

REACTIONS (4)
  - Drug dose omission [Unknown]
  - Off label use [Unknown]
  - Syringe issue [Unknown]
  - Product use issue [Unknown]

NARRATIVE: CASE EVENT DATE: 2015
